FAERS Safety Report 14417913 (Version 3)
Quarter: 2018Q1

REPORT INFORMATION
  Report Type: Report from Study
  Country: ES (occurrence: ES)
  Receive Date: 20180122
  Receipt Date: 20180215
  Transmission Date: 20180509
  Serious: Yes (Hospitalization)
  Sender: FDA-Public Use
  Company Number: ES-ROCHE-2056576

PATIENT
  Age: 62 Year
  Sex: Male
  Weight: 56 kg

DRUGS (13)
  1. LEVETIRACETAM. [Concomitant]
     Active Substance: LEVETIRACETAM
     Route: 065
     Dates: start: 20180114, end: 20180115
  2. SPIRIVA [Concomitant]
     Active Substance: TIOTROPIUM BROMIDE MONOHYDRATE
     Indication: CHRONIC OBSTRUCTIVE PULMONARY DISEASE
  3. LORAZEPAM. [Concomitant]
     Active Substance: LORAZEPAM
  4. CARBOPLATIN. [Suspect]
     Active Substance: CARBOPLATIN
     Indication: LUNG SQUAMOUS CELL CARCINOMA STAGE IV
     Dosage: AREA UNDER THE CONCENTRATION CURVE (AUC) 6 MILLIGRAMS PER MILLILITER PER MINUTE (MG/ML/MIN) ON DAY 1
     Route: 042
     Dates: start: 20170217
  5. LEVETIRACETAM. [Concomitant]
     Active Substance: LEVETIRACETAM
     Route: 065
     Dates: start: 20180119, end: 20180126
  6. ATEZOLIZUMAB. [Suspect]
     Active Substance: ATEZOLIZUMAB
     Indication: LUNG SQUAMOUS CELL CARCINOMA STAGE IV
     Dosage: ON DAY 1 OF EACH 21-DAY CYCLE?MOST RECENT DOSE PRIOR TO AE ONSET: 04/JAN/2018
     Route: 042
     Dates: start: 20170217
  7. PIPERACILLIN [Concomitant]
     Active Substance: PIPERACILLIN
     Indication: INFECTION PROPHYLAXIS
     Route: 065
     Dates: start: 20180114, end: 20180115
  8. TAZOBACTAM [Concomitant]
     Active Substance: TAZOBACTAM
     Indication: INFECTION PROPHYLAXIS
     Route: 065
     Dates: start: 20180114, end: 20180115
  9. LEVETIRACETAM. [Concomitant]
     Active Substance: LEVETIRACETAM
     Route: 065
  10. PACLITAXEL. [Suspect]
     Active Substance: PACLITAXEL
     Indication: LUNG SQUAMOUS CELL CARCINOMA STAGE IV
     Dosage: ON DAY 1 OF EACH 21-DAY CYCLE?MOST RECENT DOSE PRIOR TO AE ONSET: 30/JUN/2017 (DOSE: 343.20)
     Route: 042
     Dates: start: 20170217
  11. PARACETAMOL [Concomitant]
     Active Substance: ACETAMINOPHEN
  12. DEXERYL (SPAIN) [Concomitant]
     Indication: DRY SKIN
     Route: 065
     Dates: start: 20170810
  13. BACTROBAN [Concomitant]
     Active Substance: MUPIROCIN\MUPIROCIN CALCIUM
     Indication: PARONYCHIA
     Route: 065
     Dates: start: 20171116

REACTIONS (1)
  - Seizure [Recovered/Resolved]

NARRATIVE: CASE EVENT DATE: 20180114
